FAERS Safety Report 8043616-6 (Version None)
Quarter: 2012Q1

REPORT INFORMATION
  Report Type: 
  Country: None (occurrence: None)
  Receive Date: 20120112
  Receipt Date: 20120109
  Transmission Date: 20120608
  Serious: Yes (Other)
  Sender: FDA-Public Use
  Company Number: US-AMGEN-USASP2012001261

PATIENT
  Age: 55 Year
  Sex: Female

DRUGS (5)
  1. ZETIA [Concomitant]
  2. CALCIUM [Concomitant]
  3. PROLIA [Suspect]
     Indication: OSTEOPOROSIS POSTMENOPAUSAL
     Dosage: UNK UNK, Q6MO
     Dates: start: 20110606
  4. ANDROGEL [Concomitant]
     Dosage: UNK UNK, QD
  5. MULTI-VITAMIN [Concomitant]

REACTIONS (1)
  - RETINAL DETACHMENT [None]
